FAERS Safety Report 19169006 (Version 1)
Quarter: 2021Q2

REPORT INFORMATION
  Report Type: Spontaneous
  Country: US (occurrence: US)
  Receive Date: 20210422
  Receipt Date: 20210422
  Transmission Date: 20210717
  Serious: No
  Sender: FDA-Public Use
  Company Number: US-GLAXOSMITHKLINE-USCH2021AMR020844

PATIENT
  Sex: Female
  Weight: 89.36 kg

DRUGS (7)
  1. ADVIL [Suspect]
     Active Substance: IBUPROFEN
     Indication: BURNING SENSATION
  2. ADVIL [Suspect]
     Active Substance: IBUPROFEN
     Indication: PARAESTHESIA
  3. ADVIL [Suspect]
     Active Substance: IBUPROFEN
     Indication: ORAL DISCOMFORT
  4. ADVIL [Suspect]
     Active Substance: IBUPROFEN
     Indication: SWELLING
     Dosage: UNK
  5. ADVIL [Suspect]
     Active Substance: IBUPROFEN
     Indication: EYE PARAESTHESIA
  6. ADVIL [Suspect]
     Active Substance: IBUPROFEN
     Indication: PARAESTHESIA ORAL
  7. ADVIL [Suspect]
     Active Substance: IBUPROFEN
     Indication: EYE IRRITATION

REACTIONS (2)
  - Drug ineffective for unapproved indication [Unknown]
  - Product use in unapproved indication [Unknown]
